FAERS Safety Report 13337826 (Version 1)
Quarter: 2017Q1

REPORT INFORMATION
  Report Type: Spontaneous
  Country: US (occurrence: US)
  Receive Date: 20170315
  Receipt Date: 20170315
  Transmission Date: 20170428
  Serious: Yes (Other)
  Sender: FDA-Public Use
  Company Number: US-ELI_LILLY_AND_COMPANY-US201703002377

PATIENT
  Sex: Male

DRUGS (2)
  1. LARTRUVO [Suspect]
     Active Substance: OLARATUMAB
     Indication: SOFT TISSUE SARCOMA
     Dosage: UNK UNK, UNKNOWN
     Route: 065
     Dates: start: 201702
  2. DOXORUBIN [Concomitant]
     Active Substance: DOXORUBICIN
     Dosage: UNK, UNKNOWN
     Route: 065

REACTIONS (2)
  - Infusion related reaction [Unknown]
  - Chest pain [Unknown]

NARRATIVE: CASE EVENT DATE: 201702
